FAERS Safety Report 7087798-1 (Version None)
Quarter: 2010Q4

REPORT INFORMATION
  Report Type: 
  Country: None (occurrence: None)
  Receive Date: 20101108
  Receipt Date: 20101028
  Transmission Date: 20110411
  Serious: Yes (Other)
  Sender: FDA-Public Use
  Company Number: CA-JNJFOC-20101100708

PATIENT
  Sex: Female
  Weight: 38.6 kg

DRUGS (9)
  1. REMICADE [Suspect]
     Indication: RHEUMATOID ARTHRITIS
     Route: 042
  2. CYMBALTA [Concomitant]
  3. NEXIUM [Concomitant]
  4. TEGRETOL [Concomitant]
  5. METOPROLOL [Concomitant]
  6. ACETAMINOPHEN [Concomitant]
  7. PREDNISONE [Concomitant]
  8. THYROID [Concomitant]
  9. FELODIPINE [Concomitant]

REACTIONS (6)
  - ATAXIA [None]
  - DECREASED APPETITE [None]
  - DIPLOPIA [None]
  - FATIGUE [None]
  - VOMITING [None]
  - WEIGHT DECREASED [None]
